FAERS Safety Report 17257263 (Version 4)
Quarter: 2020Q1

REPORT INFORMATION
  Report Type: Report from Study
  Country: US (occurrence: US)
  Receive Date: 20200110
  Receipt Date: 20200302
  Transmission Date: 20200409
  Serious: Yes (Hospitalization)
  Sender: FDA-Public Use
  Company Number: NVSC2020US002823

PATIENT
  Sex: Female

DRUGS (2)
  1. PIQRAY [Suspect]
     Active Substance: ALPELISIB
     Indication: PRODUCT USED FOR UNKNOWN INDICATION
     Dosage: UNK
     Route: 048
  2. PIQRAY [Suspect]
     Active Substance: ALPELISIB
     Route: 048

REACTIONS (7)
  - Abdominal discomfort [Unknown]
  - Memory impairment [Unknown]
  - Product dose omission [Unknown]
  - Nausea [Unknown]
  - Diarrhoea [Unknown]
  - Hypersensitivity [Unknown]
  - Vomiting [Unknown]
